FAERS Safety Report 13852742 (Version 1)
Quarter: 2017Q3

REPORT INFORMATION
  Report Type: Spontaneous
  Country: US (occurrence: US)
  Receive Date: 20170810
  Receipt Date: 20170810
  Transmission Date: 20171127
  Serious: No
  Sender: FDA-Public Use
  Company Number: US-TEVA-794610ACC

PATIENT
  Age: 39 Year
  Sex: Female
  Weight: 76.27 kg

DRUGS (2)
  1. ORTHO MICRONOR [Concomitant]
     Active Substance: NORETHINDRONE
  2. PARAGARD T 380A [Suspect]
     Active Substance: COPPER
     Indication: CONTRACEPTION
     Dates: start: 20170728, end: 20170728

REACTIONS (3)
  - Complication of device insertion [Unknown]
  - Presyncope [Recovered/Resolved]
  - Syncope [Recovered/Resolved]

NARRATIVE: CASE EVENT DATE: 20170728
